FAERS Safety Report 11316095 (Version 2)
Quarter: 2015Q3

REPORT INFORMATION
  Report Type: Spontaneous
  Country: IN (occurrence: IN)
  Receive Date: 20150728
  Receipt Date: 20150731
  Transmission Date: 20151125
  Serious: Yes (Hospitalization, Other)
  Sender: FDA-Public Use
  Company Number: IN-AUROBINDO-AUR-APL-2015-06265

PATIENT
  Age: 11 Year
  Sex: Male

DRUGS (6)
  1. CLOBAZAM [Concomitant]
     Active Substance: CLOBAZAM
     Indication: GENERALISED TONIC-CLONIC SEIZURE
     Dosage: 5 MG, DAILY
     Route: 065
  2. CLOBAZAM [Concomitant]
     Active Substance: CLOBAZAM
     Indication: MYOCLONIC EPILEPSY
  3. DIVALPROEX [Suspect]
     Active Substance: DIVALPROEX SODIUM
     Indication: GENERALISED TONIC-CLONIC SEIZURE
     Dosage: 600 MG, DAILY
     Route: 048
  4. LEVETIRACETAM. [Concomitant]
     Active Substance: LEVETIRACETAM
     Indication: GENERALISED TONIC-CLONIC SEIZURE
     Dosage: 500 MG, DAILY
     Route: 065
  5. DIVALPROEX [Suspect]
     Active Substance: DIVALPROEX SODIUM
     Indication: MYOCLONIC EPILEPSY
  6. LEVETIRACETAM. [Concomitant]
     Active Substance: LEVETIRACETAM
     Indication: MYOCLONIC EPILEPSY

REACTIONS (21)
  - Myoclonus [Recovering/Resolving]
  - Blood lactic acid increased [Recovering/Resolving]
  - Generalised tonic-clonic seizure [Recovered/Resolved]
  - Muscle spasticity [Recovered/Resolved]
  - Faecal incontinence [Recovering/Resolving]
  - Amino acid level increased [Recovering/Resolving]
  - Muscular weakness [Recovering/Resolving]
  - Postural tremor [Recovered/Resolved]
  - Amnesia [Recovering/Resolving]
  - Depressed mood [Recovering/Resolving]
  - Dyskinesia [Recovering/Resolving]
  - Urinary incontinence [Recovering/Resolving]
  - Lethargy [Recovering/Resolving]
  - Communication disorder [Recovered/Resolved]
  - Extensor plantar response [Recovering/Resolving]
  - Methylmalonic aciduria [Recovering/Resolving]
  - Hypophagia [Recovering/Resolving]
  - Irritability [Recovering/Resolving]
  - Vomiting [Recovering/Resolving]
  - Nausea [Recovering/Resolving]
  - Drug ineffective [Recovered/Resolved]
